FAERS Safety Report 8304477-0 (Version None)
Quarter: 2012Q2

REPORT INFORMATION
  Report Type: 
  Country: None (occurrence: None)
  Receive Date: 20120423
  Receipt Date: 20120416
  Transmission Date: 20120825
  Serious: Yes (Hospitalization)
  Sender: FDA-Public Use
  Company Number: TH-JNJFOC-20120311668

PATIENT
  Age: 46 Year
  Sex: Female

DRUGS (2)
  1. ULTRACET [Suspect]
     Indication: PAIN
     Route: 048
     Dates: start: 20120313, end: 20120315
  2. UNASYN [Suspect]
     Indication: INFECTION
     Route: 048
     Dates: start: 20120313, end: 20120315

REACTIONS (3)
  - CHEST DISCOMFORT [None]
  - VOMITING [None]
  - RASH GENERALISED [None]
